FAERS Safety Report 7320112-2 (Version None)
Quarter: 2011Q1

REPORT INFORMATION
  Report Type: 
  Country: None (occurrence: None)
  Receive Date: 20110223
  Receipt Date: 20110223
  Transmission Date: 20110831
  Serious: Yes (Life-Threatening, Hospitalization)
  Sender: FDA-Public Use
  Company Number: None

PATIENT
  Age: 36 Year
  Sex: Male
  Weight: 68.0396 kg

DRUGS (1)
  1. CARVEDILOL [Suspect]
     Indication: HYPERTENSION
     Dosage: 6.25 MG TAB 2 PER DAY
     Dates: start: 20101001, end: 20101008

REACTIONS (3)
  - PRODUCT ODOUR ABNORMAL [None]
  - ABDOMINAL PAIN [None]
  - BLOOD PRESSURE INCREASED [None]
